FAERS Safety Report 19467250 (Version 4)
Quarter: 2021Q3

REPORT INFORMATION
  Report Type: Report from Study
  Country: DE (occurrence: DE)
  Receive Date: 20210628
  Receipt Date: 20210805
  Transmission Date: 20211014
  Serious: Yes (Other)
  Sender: FDA-Public Use
  Company Number: NVSC2021DE138467

PATIENT
  Sex: Female
  Weight: 66 kg

DRUGS (26)
  1. COSENTYX [Suspect]
     Active Substance: SECUKINUMAB
     Indication: ANKYLOSING SPONDYLITIS
     Dosage: 150 MG, ONCE
     Route: 065
     Dates: start: 20200102, end: 20200102
  2. COSENTYX [Suspect]
     Active Substance: SECUKINUMAB
     Dosage: 150 MG, ONCE
     Route: 065
     Dates: start: 20200301, end: 20200301
  3. COSENTYX [Suspect]
     Active Substance: SECUKINUMAB
     Dosage: 150 MG, ONCE
     Route: 065
     Dates: start: 20210501, end: 20210501
  4. FOLIC ACID. [Concomitant]
     Active Substance: FOLIC ACID
     Indication: PRODUCT USED FOR UNKNOWN INDICATION
     Dosage: 5 MG, QW
     Route: 048
     Dates: start: 201905
  5. COSENTYX [Suspect]
     Active Substance: SECUKINUMAB
     Dosage: 150 MG, ONCE
     Route: 065
     Dates: start: 20200401, end: 20200401
  6. COSENTYX [Suspect]
     Active Substance: SECUKINUMAB
     Dosage: 150 MG, ONCE
     Route: 065
     Dates: start: 20200901, end: 20200901
  7. COSENTYX [Suspect]
     Active Substance: SECUKINUMAB
     Dosage: 150 MG, ONCE
     Route: 065
     Dates: start: 20210101, end: 20210101
  8. METHOTREXATE. [Concomitant]
     Active Substance: METHOTREXATE
     Indication: SPONDYLITIS
     Dosage: 15 MG, QW
     Route: 058
     Dates: start: 201905
  9. RIZATRIPTAN. [Concomitant]
     Active Substance: RIZATRIPTAN
     Indication: MIGRAINE
     Dosage: UNK, PRN
     Route: 048
     Dates: start: 2021
  10. COSENTYX [Suspect]
     Active Substance: SECUKINUMAB
     Dosage: 150 MG, ONCE
     Route: 065
     Dates: start: 20200501, end: 20200501
  11. COSENTYX [Suspect]
     Active Substance: SECUKINUMAB
     Dosage: 150 MG, ONCE
     Route: 065
     Dates: start: 20200601, end: 20200601
  12. COSENTYX [Suspect]
     Active Substance: SECUKINUMAB
     Dosage: 150 MG, ONCE
     Route: 065
     Dates: start: 20200801, end: 20200801
  13. COSENTYX [Suspect]
     Active Substance: SECUKINUMAB
     Dosage: 150 MG, ONCE
     Route: 065
     Dates: start: 20201101, end: 20201101
  14. COSENTYX [Suspect]
     Active Substance: SECUKINUMAB
     Dosage: 150 MG, ONCE
     Route: 065
     Dates: start: 20200116, end: 20200116
  15. COSENTYX [Suspect]
     Active Substance: SECUKINUMAB
     Dosage: 150 MG, ONCE
     Route: 065
     Dates: start: 20200701, end: 20200701
  16. COSENTYX [Suspect]
     Active Substance: SECUKINUMAB
     Dosage: 150 MG, ONCE
     Route: 065
     Dates: start: 20200123, end: 20200123
  17. COSENTYX [Suspect]
     Active Substance: SECUKINUMAB
     Dosage: 150 MG, ONCE
     Route: 065
     Dates: start: 20200130, end: 20200130
  18. L?THYROXINE [Concomitant]
     Active Substance: LEVOTHYROXINE
     Indication: THYROIDITIS
     Dosage: 50 UG, QD
     Route: 048
     Dates: start: 2021
  19. COSENTYX [Suspect]
     Active Substance: SECUKINUMAB
     Dosage: 150 MG, ONCE
     Route: 065
     Dates: start: 20210201, end: 20210201
  20. COSENTYX [Suspect]
     Active Substance: SECUKINUMAB
     Dosage: 150 MG, ONCE
     Route: 065
     Dates: start: 20210401, end: 20210401
  21. COSENTYX [Suspect]
     Active Substance: SECUKINUMAB
     Dosage: 150 MG, ONCE
     Route: 065
     Dates: start: 20210301, end: 20210301
  22. PROPRA [Concomitant]
     Active Substance: PROPRANOLOL HYDROCHLORIDE
     Indication: GOITRE
     Dosage: 10 MG, PRN
     Route: 065
     Dates: start: 20181214, end: 2020
  23. VIGANTOLETTEN [Concomitant]
     Active Substance: CHOLECALCIFEROL
     Indication: OSTEOPOROSIS PROPHYLAXIS
     Dosage: 1000 IU, QD
     Route: 048
     Dates: start: 20200102
  24. COSENTYX [Suspect]
     Active Substance: SECUKINUMAB
     Dosage: 150 MG, ONCE
     Route: 065
     Dates: start: 20200109, end: 20200109
  25. COSENTYX [Suspect]
     Active Substance: SECUKINUMAB
     Dosage: 150 MG, ONCE
     Route: 065
     Dates: start: 20201001, end: 20201001
  26. COSENTYX [Suspect]
     Active Substance: SECUKINUMAB
     Dosage: 150 MG, ONCE
     Route: 065
     Dates: start: 20201201, end: 20201201

REACTIONS (2)
  - Concomitant disease aggravated [Not Recovered/Not Resolved]
  - Ankylosing spondylitis [Not Recovered/Not Resolved]

NARRATIVE: CASE EVENT DATE: 20210115
